FAERS Safety Report 15348630 (Version 1)
Quarter: 2018Q3

REPORT INFORMATION
  Report Type: Spontaneous
  Country: US (occurrence: US)
  Receive Date: 20180904
  Receipt Date: 20180904
  Transmission Date: 20181010
  Serious: Yes (Other)
  Sender: FDA-Public Use
  Company Number: US-PFIZER INC-2018355609

PATIENT
  Age: 70 Year
  Sex: Male

DRUGS (1)
  1. NITROGLYCERIN. [Suspect]
     Active Substance: NITROGLYCERIN
     Indication: ANGINA PECTORIS
     Dosage: 2.5 UG/KG, UNK (2.5 UG/KG/MIN)
     Route: 042

REACTIONS (4)
  - Blood bilirubin increased [Unknown]
  - Pulmonary oedema [Unknown]
  - Blood creatine increased [Unknown]
  - Disease recurrence [Unknown]
